FAERS Safety Report 8157851-X (Version None)
Quarter: 2012Q1

REPORT INFORMATION
  Report Type: 
  Country: None (occurrence: None)
  Receive Date: 20120222
  Receipt Date: 20120215
  Transmission Date: 20120608
  Serious: Yes (Hospitalization)
  Sender: FDA-Public Use
  Company Number: US-OPTIMER-20120020

PATIENT
  Age: 74 Year
  Sex: Female

DRUGS (2)
  1. DIFICID [Suspect]
     Indication: CLOSTRIDIAL INFECTION
     Dosage: 200 MG, BID
     Route: 048
  2. DIFICID [Suspect]
     Indication: PSEUDOMEMBRANOUS COLITIS

REACTIONS (3)
  - DISEASE RECURRENCE [None]
  - CLOSTRIDIAL INFECTION [None]
  - DIARRHOEA [None]
